FAERS Safety Report 9181428 (Version 1)
Quarter: 2013Q1

REPORT INFORMATION
  Report Type: Spontaneous
  Country: US (occurrence: US)
  Receive Date: 20130322
  Receipt Date: 20130322
  Transmission Date: 20140127
  Serious: No
  Sender: FDA-Public Use
  Company Number: US-B.I. PHARMACEUTICALS,INC./RIDGEFIELD-2013-BI-07099BP

PATIENT
  Age: 59 Year
  Sex: Female
  Weight: 52 kg

DRUGS (2)
  1. MIRAPEX [Suspect]
     Indication: RESTLESS LEGS SYNDROME
     Dosage: 0.125 MG
     Route: 048
     Dates: start: 20130111, end: 20130201
  2. PROTONIX [Concomitant]
     Indication: HELICOBACTER INFECTION
     Dosage: 40 MG
     Route: 048
     Dates: start: 20130124

REACTIONS (1)
  - Pain in extremity [Not Recovered/Not Resolved]
